FAERS Safety Report 6825394-9 (Version None)
Quarter: 2010Q3

REPORT INFORMATION
  Report Type: 
  Country: None (occurrence: None)
  Receive Date: 20100708
  Receipt Date: 20061211
  Transmission Date: 20110219
  Serious: No
  Sender: FDA-Public Use
  Company Number: US-PFIZER INC-2006153965

PATIENT
  Sex: Female
  Weight: 72.57 kg

DRUGS (2)
  1. CHANTIX [Suspect]
     Indication: SMOKING CESSATION THERAPY
     Dates: start: 20061127, end: 20061211
  2. VIVELLE-DOT [Concomitant]
     Indication: HORMONE REPLACEMENT THERAPY
     Route: 062
     Dates: start: 20020101

REACTIONS (3)
  - FLUSHING [None]
  - PRURITUS GENERALISED [None]
  - RASH [None]
